FAERS Safety Report 7437152-5 (Version None)
Quarter: 2011Q2

REPORT INFORMATION
  Report Type: 
  Country: None (occurrence: None)
  Receive Date: 20110426
  Receipt Date: 20101101
  Transmission Date: 20111010
  Serious: Yes (Hospitalization)
  Sender: FDA-Public Use
  Company Number: US-BAYER-201033525NA

PATIENT
  Age: 23 Year
  Sex: Female
  Weight: 68.934 kg

DRUGS (2)
  1. YASMIN [Suspect]
     Indication: DYSMENORRHOEA
     Dates: start: 20050501, end: 20060101
  2. MOTRIN [Concomitant]

REACTIONS (8)
  - CHEST PAIN [None]
  - DEEP VEIN THROMBOSIS [None]
  - PAIN [None]
  - PAIN IN EXTREMITY [None]
  - COUGH [None]
  - PULMONARY EMBOLISM [None]
  - FEAR [None]
  - DYSPNOEA [None]
